FAERS Safety Report 11737162 (Version 1)
Quarter: 2015Q4

REPORT INFORMATION
  Report Type: Spontaneous
  Country: US (occurrence: US)
  Receive Date: 20151110
  Receipt Date: 20151110
  Transmission Date: 20160304
  Serious: No
  Sender: FDA-Public Use
  Company Number: US-ELI_LILLY_AND_COMPANY-US201205006491

PATIENT
  Sex: Female

DRUGS (3)
  1. FORTEO [Suspect]
     Active Substance: TERIPARATIDE
     Dosage: 20 UG, QD
  2. FORTEO [Suspect]
     Active Substance: TERIPARATIDE
     Dosage: 20 UG, QD
     Dates: end: 20120627
  3. FORTEO [Suspect]
     Active Substance: TERIPARATIDE
     Indication: OSTEOPOROSIS
     Dosage: 20 UG, QD
     Dates: start: 20120422

REACTIONS (9)
  - Myalgia [Not Recovered/Not Resolved]
  - Musculoskeletal disorder [Not Recovered/Not Resolved]
  - Pain in extremity [Recovering/Resolving]
  - Musculoskeletal discomfort [Unknown]
  - Muscular weakness [Not Recovered/Not Resolved]
  - Injection site erythema [Unknown]
  - Arthropathy [Not Recovered/Not Resolved]
  - Arthralgia [Unknown]
  - Arthralgia [Not Recovered/Not Resolved]
